FAERS Safety Report 18766589 (Version 2)
Quarter: 2021Q1

REPORT INFORMATION
  Report Type: Spontaneous
  Country: IT (occurrence: IT)
  Receive Date: 20210121
  Receipt Date: 20210222
  Transmission Date: 20210419
  Serious: Yes (Other)
  Sender: FDA-Public Use
  Company Number: IT-SUN PHARMACEUTICAL INDUSTRIES LTD-2021RR-276884

PATIENT
  Age: 53 Year
  Sex: Male

DRUGS (2)
  1. TAVOR (LORAZEPAM) [Suspect]
     Active Substance: LORAZEPAM
     Indication: DRUG ABUSE
     Dosage: 2 MILLIGRAM, IN TOTAL
     Route: 048
     Dates: start: 20201118, end: 20201118
  2. PANTOPRAZOLE [Suspect]
     Active Substance: PANTOPRAZOLE
     Indication: DRUG ABUSE
     Dosage: 380 MILLIGRAM, IN TOTAL
     Route: 048
     Dates: start: 20201118, end: 20201118

REACTIONS (4)
  - Vertigo [Recovered/Resolved]
  - Drug abuse [Recovered/Resolved]
  - Confabulation [Recovered/Resolved]
  - Dysarthria [Recovered/Resolved]

NARRATIVE: CASE EVENT DATE: 20201118
